FAERS Safety Report 5060166-X (Version None)
Quarter: 2006Q3

REPORT INFORMATION
  Report Type: 
  Country: None (occurrence: None)
  Receive Date: 20060724
  Receipt Date: 20060718
  Transmission Date: 20061208
  Serious: Yes (Death)
  Sender: FDA-Public Use
  Company Number: AU-BOEHRINGER INGELHEIM PHARMACEUTICALS, INC.-2006-BP-08231AU

PATIENT
  Age: 81 Year
  Sex: Male

DRUGS (2)
  1. MOBIC [Suspect]
     Route: 048
  2. MICARDIS [Suspect]
     Route: 048

REACTIONS (1)
  - RENAL FAILURE [None]
